FAERS Safety Report 7180220-6 (Version None)
Quarter: 2010Q4

REPORT INFORMATION
  Report Type: 
  Country: None (occurrence: None)
  Receive Date: 20101221
  Receipt Date: 20101216
  Transmission Date: 20110411
  Serious: Yes (Death)
  Sender: FDA-Public Use
  Company Number: US-AMGEN-USASP2010002257

PATIENT

DRUGS (2)
  1. NPLATE [Suspect]
     Indication: IDIOPATHIC THROMBOCYTOPENIC PURPURA
     Dosage: 2 A?G/KG, UNK
     Dates: start: 20090303, end: 20090416
  2. NPLATE [Suspect]
     Indication: THROMBOCYTOPENIA
     Dosage: 2 A?G/KG, UNK
     Dates: start: 20100820, end: 20100820

REACTIONS (1)
  - LYMPHOMA [None]
